FAERS Safety Report 14255402 (Version 4)
Quarter: 2018Q2

REPORT INFORMATION
  Report Type: Spontaneous
  Country: IT (occurrence: IT)
  Receive Date: 20171206
  Receipt Date: 20180427
  Transmission Date: 20180711
  Serious: Yes (Hospitalization)
  Sender: FDA-Public Use
  Company Number: IT-ASTRAZENECA-2017SF22153

PATIENT
  Age: 24 Year
  Sex: Female

DRUGS (3)
  1. LITHIUM CARBONATE. [Suspect]
     Active Substance: LITHIUM CARBONATE
     Indication: PRODUCT USED FOR UNKNOWN INDICATION
     Dosage: 450.0MG ONCE/SINGLE ADMINISTRATION
     Route: 048
     Dates: start: 20170222, end: 20170222
  2. FLUOXETINE HYDROCHLORIDE. [Suspect]
     Active Substance: FLUOXETINE HYDROCHLORIDE
     Indication: PRODUCT USED FOR UNKNOWN INDICATION
     Dosage: 200.0MG ONCE/SINGLE ADMINISTRATION
     Route: 048
     Dates: start: 20170222, end: 20170222
  3. QUETIAPINE. [Suspect]
     Active Substance: QUETIAPINE
     Indication: PRODUCT USED FOR UNKNOWN INDICATION
     Dosage: 2000.0MG ONCE/SINGLE ADMINISTRATION
     Route: 048
     Dates: start: 20170222, end: 20170222

REACTIONS (3)
  - Intentional overdose [Unknown]
  - Drug abuse [Unknown]
  - Intentional self-injury [Unknown]

NARRATIVE: CASE EVENT DATE: 20170222
